FAERS Safety Report 8814082 (Version 1)
Quarter: 2012Q4

REPORT INFORMATION
  Report Type: 
  Country: US (occurrence: US)
  Receive Date: 20120928
  Receipt Date: 20120928
  Transmission Date: 20130627
  Serious: No
  Sender: FDA-Public Use
  Company Number: US-PFIZER INC-2012239901

PATIENT
  Age: 53 Year
  Sex: Female
  Weight: 99.77 kg

DRUGS (4)
  1. EFFEXOR XR [Suspect]
     Indication: DEPRESSION
     Dosage: 150 mg, 1x/day
     Route: 048
  2. EFFEXOR XR [Suspect]
     Indication: ANXIETY
     Dosage: 225 mg, 1x/day
     Route: 048
     Dates: end: 201208
  3. XANAX [Concomitant]
     Indication: ANXIETY
     Dosage: 0.5 mg, 3x/day
  4. XANAX [Concomitant]
     Indication: PANIC DISORDER

REACTIONS (5)
  - Nausea [Recovered/Resolved]
  - Malaise [Recovered/Resolved]
  - Mental disorder [Recovered/Resolved]
  - Feeling abnormal [Recovered/Resolved]
  - Insomnia [Recovered/Resolved]
